FAERS Safety Report 5545380-9 (Version None)
Quarter: 2007Q4

REPORT INFORMATION
  Report Type: 
  Country: None (occurrence: None)
  Receive Date: 20071206
  Receipt Date: 20071125
  Transmission Date: 20080405
  Serious: Yes (Other)
  Sender: FDA-Public Use
  Company Number: ACO_00407_2007

PATIENT
  Sex: Female

DRUGS (3)
  1. SIRDALUD (SIRDALUD - TIZANIDINE HYDROCHLORIDE) (NOT SPECIFIED) [Suspect]
     Indication: BACK PAIN
     Dosage: (DF ORAL)
     Route: 048
     Dates: start: 20051101
  2. LIORESAL [Concomitant]
  3. DICLOFENAC POTASSIUM [Concomitant]

REACTIONS (1)
  - DIABETES MELLITUS [None]
